FAERS Safety Report 5313899-1 (Version None)
Quarter: 2007Q2

REPORT INFORMATION
  Report Type: 
  Country: None (occurrence: None)
  Receive Date: 20070501
  Receipt Date: 20070420
  Transmission Date: 20071010
  Serious: Yes (Other)
  Sender: FDA-Public Use
  Company Number: US-JNJFOC-20070405077

PATIENT
  Sex: Female
  Weight: 74.84 kg

DRUGS (2)
  1. TOPAMAX [Suspect]
     Indication: MIGRAINE PROPHYLAXIS
     Dosage: 200 MG IN AM; 300 MG IN PM.
     Route: 048
  2. HYDROCHLOROTHIAZIDE [Concomitant]
     Indication: HYPERTENSION
     Route: 048

REACTIONS (4)
  - BALANCE DISORDER [None]
  - BLINDNESS UNILATERAL [None]
  - HYPERAESTHESIA [None]
  - PARAESTHESIA [None]
